FAERS Safety Report 10082862 (Version 3)
Quarter: 2014Q3

REPORT INFORMATION
  Report Type: Spontaneous
  Country: JP (occurrence: JP)
  Receive Date: 20140416
  Receipt Date: 20140730
  Transmission Date: 20150326
  Serious: Yes (Life-Threatening)
  Sender: FDA-Public Use
  Company Number: PHHY2014JP046557

PATIENT
  Age: 80 Year
  Sex: Male
  Weight: 47 kg

DRUGS (13)
  1. NEXIUM [Concomitant]
     Active Substance: ESOMEPRAZOLE MAGNESIUM
     Dosage: 20 MG, QD ONCE DAILY AFTER BREAKFAST
     Route: 048
     Dates: start: 201311, end: 201401
  2. EPINASTINE [Concomitant]
     Active Substance: EPINASTINE
     Dosage: UNK UKN, UNK
  3. WARFARIN [Concomitant]
     Active Substance: WARFARIN
     Dosage: UNK UKN, UNK
     Route: 048
  4. ACICLOVIN [Concomitant]
     Indication: HERPES ZOSTER
     Dosage: UNK UKN, UNK
     Route: 041
     Dates: start: 20140322
  5. METHYCOBAL [Concomitant]
     Active Substance: METHYLCOBALAMIN
     Dosage: UNK UKN, UNK
  6. BAYASPIRIN [Concomitant]
     Active Substance: ASPIRIN
     Dosage: UNK UKN, UNK
     Route: 048
  7. ONEALFA [Concomitant]
     Active Substance: ALFACALCIDOL
     Dosage: UNK UKN, UNK
     Route: 048
  8. FOSRENOL [Concomitant]
     Active Substance: LANTHANUM CARBONATE
     Dosage: UNK UKN, UNK
     Route: 048
  9. VOLTAREN [Suspect]
     Active Substance: DICLOFENAC SODIUM
     Indication: PYREXIA
     Dosage: 25 MG, UNK
     Route: 054
     Dates: start: 20140322, end: 20140322
  10. PLAVIX [Concomitant]
     Active Substance: CLOPIDOGREL BISULFATE
     Dosage: 75 MG, QD ONCE DAILY AFTER BREAKFAST
     Route: 048
     Dates: start: 201308
  11. BIOFERMIN [Concomitant]
     Active Substance: BACILLUS SUBTILIS\LACTOBACILLUS ACIDOPHILUS\STREPTOCOCCUS FAECAIS
     Dosage: UNK UKN, UNK
     Route: 048
  12. CRESTOR [Concomitant]
     Active Substance: ROSUVASTATIN CALCIUM
     Dosage: 2.5 MG, QD ONCE DAILY AFTER SUPPER
     Route: 048
     Dates: start: 20110214
  13. REMITCH [Concomitant]
     Active Substance: NALFURAFINE HYDROCHLORIDE
     Dosage: UNK UKN, UNK
     Route: 048

REACTIONS (2)
  - Rhabdomyolysis [Recovered/Resolved]
  - Shock [Recovered/Resolved]

NARRATIVE: CASE EVENT DATE: 20140323
